FAERS Safety Report 26080523 (Version 1)
Quarter: 2025Q4

REPORT INFORMATION
  Report Type: Report from Study
  Country: US (occurrence: US)
  Receive Date: 20251124
  Receipt Date: 20251124
  Transmission Date: 20260117
  Serious: Yes (Other)
  Sender: ALEXION PHARMACEUTICALS
  Company Number: US-AstraZeneca-CH-00996230A

PATIENT
  Sex: Male
  Weight: 195.58 kg

DRUGS (1)
  1. ACALABRUTINIB [Suspect]
     Active Substance: ACALABRUTINIB
     Indication: Lymphoid leukaemia (in remission)
     Dosage: 100 MILLIGRAM, QD
     Dates: start: 201812

REACTIONS (2)
  - Nephrolithiasis [Unknown]
  - Gastrointestinal disorder [Unknown]
